FAERS Safety Report 7018948-0 (Version None)
Quarter: 2010Q3

REPORT INFORMATION
  Report Type: 
  Country: None (occurrence: None)
  Receive Date: 20100928
  Receipt Date: 20100729
  Transmission Date: 20110219
  Serious: Yes (Other)
  Sender: FDA-Public Use
  Company Number: PHHO2010TR06148

PATIENT
  Sex: Female
  Weight: 66.7 kg

DRUGS (10)
  1. EXELON [Suspect]
     Indication: DEMENTIA
     Dosage: 16 MG
     Route: 048
     Dates: start: 20081103
  2. STALEVO 100 [Concomitant]
     Indication: PARKINSON'S DISEASE
     Dosage: UNK
  3. CABASER [Concomitant]
     Dosage: UNK
  4. DEFLAN [Concomitant]
     Dosage: UNK
  5. CORASPIN [Concomitant]
     Dosage: UNK
  6. LOMUSOL [Concomitant]
  7. AMANTADINE HCL [Concomitant]
  8. APOMORPHINE [Concomitant]
  9. LIORESAL [Concomitant]
     Dosage: UNK
  10. APO-GO [Concomitant]
     Indication: PARKINSON'S DISEASE
     Dosage: UNK

REACTIONS (1)
  - PNEUMONIA [None]
